FAERS Safety Report 4790556-1 (Version None)
Quarter: 2005Q4

REPORT INFORMATION
  Report Type: 
  Country: None (occurrence: None)
  Receive Date: 20051005
  Receipt Date: 20050924
  Transmission Date: 20060501
  Serious: Yes (Hospitalization, Other)
  Sender: FDA-Public Use
  Company Number: 2005133623

PATIENT
  Age: 73 Year
  Sex: Male
  Weight: 59 kg

DRUGS (11)
  1. LYRICA [Suspect]
     Indication: POST HERPETIC NEURALGIA
     Dosage: 50 MG (50 MG, 1 IN 1 D), ORAL
     Route: 048
     Dates: start: 20050901, end: 20050922
  2. ALLOPURINOL [Concomitant]
  3. BUMEX [Concomitant]
  4. PREDNISONE [Concomitant]
  5. VERAPAMIL - SLOW RELEASE (VERAPAMIL HYDROCHLORIDE) [Concomitant]
  6. PREVACID [Concomitant]
  7. COZAAR [Concomitant]
  8. COREG [Concomitant]
  9. COLCHICINE (COLCHICINE) [Concomitant]
  10. FOLIC ACID [Concomitant]
  11. HEPARIN [Concomitant]

REACTIONS (6)
  - CARDIAC FAILURE CONGESTIVE [None]
  - HYPOTENSION [None]
  - PANCYTOPENIA [None]
  - RENAL FAILURE [None]
  - RESPIRATORY FAILURE [None]
  - SEPSIS [None]
